FAERS Safety Report 5802055-6 (Version None)
Quarter: 2008Q3

REPORT INFORMATION
  Report Type: 
  Country: None (occurrence: None)
  Receive Date: 20080707
  Receipt Date: 20080626
  Transmission Date: 20090109
  Serious: Yes (Hospitalization)
  Sender: FDA-Public Use
  Company Number: AT-PFIZER INC-2008053646

PATIENT
  Age: 52 Year
  Sex: Female

DRUGS (1)
  1. DEPOCON [Suspect]
     Indication: CONTRACEPTION
     Route: 030

REACTIONS (5)
  - INJECTION SITE MOVEMENT IMPAIRMENT [None]
  - INJECTION SITE NECROSIS [None]
  - INJECTION SITE PAIN [None]
  - PARAESTHESIA [None]
  - PRURITUS [None]
